FAERS Safety Report 23129999 (Version 2)
Quarter: 2023Q4

REPORT INFORMATION
  Report Type: Report from Study
  Country: NZ (occurrence: NZ)
  Receive Date: 20231031
  Receipt Date: 20231109
  Transmission Date: 20240109
  Serious: Yes (Other)
  Sender: FDA-Public Use
  Company Number: NZ-BAYER-2023A149378

PATIENT
  Age: 12 Year
  Sex: Female
  Weight: 36.14 kg

DRUGS (2)
  1. REGORAFENIB [Suspect]
     Active Substance: REGORAFENIB
     Indication: Ewing^s sarcoma
     Dosage: UNK
     Dates: start: 20230718, end: 20230903
  2. REGORAFENIB [Suspect]
     Active Substance: REGORAFENIB
     Indication: Metastasis

REACTIONS (4)
  - Urticaria [None]
  - Pyrexia [None]
  - Oral pain [None]
  - Laboratory test abnormal [None]
